FAERS Safety Report 7343461-0 (Version None)
Quarter: 2011Q1

REPORT INFORMATION
  Report Type: 
  Country: None (occurrence: None)
  Receive Date: 20110310
  Receipt Date: 20100119
  Transmission Date: 20110831
  Serious: No
  Sender: FDA-Public Use
  Company Number: A0840222A

PATIENT
  Age: 28 Year
  Sex: Male

DRUGS (1)
  1. NICORETTE (MINT) [Suspect]
     Dates: start: 20100113

REACTIONS (7)
  - EAR DISORDER [None]
  - HYPERSENSITIVITY [None]
  - EAR PRURITUS [None]
  - DRUG ADMINISTRATION ERROR [None]
  - PRURITUS [None]
  - EYE PRURITUS [None]
  - DRY EYE [None]
